FAERS Safety Report 17055746 (Version 1)
Quarter: 2019Q4

REPORT INFORMATION
  Report Type: Spontaneous
  Country: US (occurrence: US)
  Receive Date: 20191120
  Receipt Date: 20191120
  Transmission Date: 20200122
  Serious: Yes (Other)
  Sender: FDA-Public Use
  Company Number: US-NOVOPROD-693576

PATIENT
  Age: 71 Year
  Sex: Female

DRUGS (3)
  1. NOVOLOG [Suspect]
     Active Substance: INSULIN ASPART
     Indication: DIABETES MELLITUS INADEQUATE CONTROL
     Dosage: 200 UNITS
     Route: 058
  2. NOVOLOG [Suspect]
     Active Substance: INSULIN ASPART
     Indication: TYPE 2 DIABETES MELLITUS
     Dosage: SLIDING SCALE
     Route: 058
  3. TRESIBA [Concomitant]
     Active Substance: INSULIN DEGLUDEC
     Indication: TYPE 2 DIABETES MELLITUS
     Dosage: 10 IU, QD (10 UNITS ONCE A DAY)
     Route: 058
     Dates: start: 20191021

REACTIONS (8)
  - Autoimmune disorder [Unknown]
  - Nervousness [Unknown]
  - Weight increased [Unknown]
  - Blood glucose increased [Unknown]
  - Muscular weakness [Unknown]
  - Pruritus [Unknown]
  - Intentional product use issue [Unknown]
  - Blood glucose fluctuation [Unknown]
